FAERS Safety Report 15336325 (Version 5)
Quarter: 2020Q1

REPORT INFORMATION
  Report Type: Report from Study
  Country: US (occurrence: US)
  Receive Date: 20180830
  Receipt Date: 20200224
  Transmission Date: 20200409
  Serious: Yes (Hospitalization, Other)
  Sender: FDA-Public Use
  Company Number: US-ACTELION-A-NJ2018-177996

PATIENT
  Age: 78 Year
  Sex: Female
  Weight: 69.84 kg

DRUGS (2)
  1. TRACLEER [Suspect]
     Active Substance: BOSENTAN
     Indication: PULMONARY ARTERIAL HYPERTENSION
     Dosage: 125 MG, BID
     Route: 048
     Dates: start: 20060502
  2. ELIQUIS [Concomitant]
     Active Substance: APIXABAN

REACTIONS (11)
  - Hospitalisation [Unknown]
  - Cardiac pacemaker replacement [Unknown]
  - Oedema peripheral [Not Recovered/Not Resolved]
  - Cardiac operation [Unknown]
  - Tricuspid valve repair [Unknown]
  - Device leakage [Recovered/Resolved]
  - Mitral valve replacement [Unknown]
  - Dyspnoea exertional [Unknown]
  - Feeling abnormal [Not Recovered/Not Resolved]
  - Glaucoma [Unknown]
  - Macular degeneration [Unknown]

NARRATIVE: CASE EVENT DATE: 201807
